FAERS Safety Report 5056840-1 (Version None)
Quarter: 2006Q3

REPORT INFORMATION
  Report Type: 
  Country: None (occurrence: None)
  Receive Date: 20060721
  Receipt Date: 20060718
  Transmission Date: 20061208
  Serious: Yes (Life-Threatening, Other)
  Sender: FDA-Public Use
  Company Number: PHBS2006NO10814

PATIENT
  Age: 69 Year
  Sex: Male

DRUGS (3)
  1. ESCITALOPRAM OXALATE [Concomitant]
     Indication: ANXIETY
     Dosage: 20 MG, QD
     Route: 048
  2. BENERVA [Concomitant]
     Indication: ABSTAINS FROM ALCOHOL
     Dosage: 300 MG, BID
     Route: 048
     Dates: start: 20060601
  3. TEGRETOL [Suspect]
     Indication: ABSTAINS FROM ALCOHOL
     Dosage: 200 MG, TID
     Route: 047
     Dates: start: 20060601, end: 20060628

REACTIONS (15)
  - BALANCE DISORDER [None]
  - BLOOD PRESSURE INCREASED [None]
  - C-REACTIVE PROTEIN INCREASED [None]
  - CONFUSIONAL STATE [None]
  - COORDINATION ABNORMAL [None]
  - DELIRIUM [None]
  - DISORIENTATION [None]
  - HAEMOGLOBIN DECREASED [None]
  - NEUTROPENIA [None]
  - NEUTROPHIL COUNT DECREASED [None]
  - PANCYTOPENIA [None]
  - PLATELET COUNT DECREASED [None]
  - PYREXIA [None]
  - RETICULOCYTE COUNT DECREASED [None]
  - WHITE BLOOD CELL COUNT DECREASED [None]
